FAERS Safety Report 10690592 (Version 1)
Quarter: 2015Q1

REPORT INFORMATION
  Report Type: Spontaneous
  Country: ES (occurrence: ES)
  Receive Date: 20150105
  Receipt Date: 20150105
  Transmission Date: 20150720
  Serious: Yes (Life-Threatening)
  Sender: FDA-Public Use
  Company Number: ES-BAYER-2014-190481

PATIENT
  Age: 56 Year
  Sex: Male
  Weight: 84 kg

DRUGS (1)
  1. NEXAVAR [Suspect]
     Active Substance: SORAFENIB
     Indication: HEPATIC CANCER
     Dosage: 400 MG, QD
     Route: 048
     Dates: start: 20141126, end: 20141216

REACTIONS (3)
  - Upper gastrointestinal haemorrhage [Recovered/Resolved]
  - Portal hypertensive gastropathy [Recovered/Resolved]
  - Gastric antral vascular ectasia [Recovered/Resolved]

NARRATIVE: CASE EVENT DATE: 20141126
